FAERS Safety Report 8383363-4 (Version None)
Quarter: 2012Q2

REPORT INFORMATION
  Report Type: 
  Country: None (occurrence: None)
  Receive Date: 20120524
  Receipt Date: 20120518
  Transmission Date: 20120825
  Serious: Yes (Other)
  Sender: FDA-Public Use
  Company Number: US-ABBOTT-12P-163-0937056-00

PATIENT
  Sex: Male

DRUGS (2)
  1. DEPAKOTE [Suspect]
     Indication: PRODUCT USED FOR UNKNOWN INDICATION
  2. ANESTHETICS [Suspect]
     Indication: CARDIAC OPERATION

REACTIONS (3)
  - AMMONIA INCREASED [None]
  - CARDIAC OPERATION [None]
  - CONFUSIONAL STATE [None]
